FAERS Safety Report 6496673-2 (Version None)
Quarter: 2009Q4

REPORT INFORMATION
  Report Type: 
  Country: None (occurrence: None)
  Receive Date: 20091125
  Receipt Date: 20090713
  Transmission Date: 20100525
  Serious: Yes (Other)
  Sender: FDA-Public Use
  Company Number: 2009BH011484

PATIENT
  Age: 75 Year
  Sex: Male

DRUGS (20)
  1. DIANEAL [Suspect]
     Indication: PERITONEAL DIALYSIS
     Dosage: 10 L ; EVERY DAY ; IP : 9 L ; EVERY DAY ; IP
     Route: 033
     Dates: start: 20081201, end: 20090706
  2. DIANEAL [Suspect]
     Indication: PERITONEAL DIALYSIS
     Dosage: 10 L ; EVERY DAY ; IP : 9 L ; EVERY DAY ; IP
     Route: 033
     Dates: start: 20090706
  3. EXTRANEAL [Suspect]
     Indication: PERITONEAL DIALYSIS
     Dosage: 2 L ; EVERY DAY ; IP : 1 L ; EVERY DAY ; IP
     Route: 033
     Dates: start: 20081201, end: 20090706
  4. EXTRANEAL [Suspect]
     Indication: PERITONEAL DIALYSIS
     Dosage: 2 L ; EVERY DAY ; IP : 1 L ; EVERY DAY ; IP
     Route: 033
     Dates: start: 20090706
  5. FORTAZ [Concomitant]
  6. EPOGEN [Concomitant]
  7. CLONIDINE [Concomitant]
  8. DIFLUCAN [Concomitant]
  9. ERGOCALCIFEROL [Concomitant]
  10. LASIX [Concomitant]
  11. POLYETHYLENE GLYCOL 3350 [Concomitant]
  12. INSULIN DETEMIR [Concomitant]
  13. MINIPRESS [Concomitant]
  14. NEURONTIN [Concomitant]
  15. AMLODIPINE [Concomitant]
  16. PROSCAR [Concomitant]
  17. SENNA [Concomitant]
  18. VITAMIN B COMPLEX CAP [Concomitant]
  19. VITAMIN C [Concomitant]
  20. VENOFER [Concomitant]

REACTIONS (3)
  - ABDOMINAL DISTENSION [None]
  - PERITONEAL DIALYSIS COMPLICATION [None]
  - PERITONITIS BACTERIAL [None]
